FAERS Safety Report 10015246 (Version 1)
Quarter: 2014Q1

REPORT INFORMATION
  Report Type: Spontaneous
  Country: US (occurrence: US)
  Receive Date: 20140317
  Receipt Date: 20140317
  Transmission Date: 20141002
  Serious: No
  Sender: FDA-Public Use
  Company Number: US-PFIZER INC-2014071710

PATIENT
  Sex: Female

DRUGS (1)
  1. NEOMYCIN SULFATE [Suspect]
     Indication: PARONYCHIA
     Dosage: UNK
     Route: 061

REACTIONS (4)
  - Hypersensitivity [Unknown]
  - Erythema [Unknown]
  - Skin irritation [Unknown]
  - Condition aggravated [Unknown]
